FAERS Safety Report 6077739-8 (Version None)
Quarter: 2009Q1

REPORT INFORMATION
  Report Type: 
  Country: None (occurrence: None)
  Receive Date: 20090211
  Receipt Date: 20090129
  Transmission Date: 20090719
  Serious: Yes (Other)
  Sender: FDA-Public Use
  Company Number: THQ2009A00468

PATIENT
  Age: 48 Year
  Sex: Female

DRUGS (6)
  1. LANSOPRAZOLE [Suspect]
     Indication: HELICOBACTER INFECTION
     Dosage: 30 MG PER ORAL
     Route: 048
     Dates: start: 20080806, end: 20080807
  2. OXAZEPAM [Concomitant]
  3. CLARITHROMYCIN [Concomitant]
  4. SYMBICORT [Concomitant]
  5. SPIRIVA [Concomitant]
  6. AMOXICILLIN [Concomitant]

REACTIONS (2)
  - CLOSTRIDIUM COLITIS [None]
  - PSYCHOTIC DISORDER [None]
